FAERS Safety Report 7768052-9 (Version None)
Quarter: 2011Q3

REPORT INFORMATION
  Report Type: 
  Country: None (occurrence: None)
  Receive Date: 20110922
  Receipt Date: 20110912
  Transmission Date: 20111222
  Serious: Yes (Other)
  Sender: FDA-Public Use
  Company Number: US-BAYER-2011-033371

PATIENT
  Age: 28 Year
  Sex: Female
  Weight: 54.422 kg

DRUGS (4)
  1. DROSPIRENONE AND ETHINYL ESTRADIOL [Suspect]
     Indication: CONTRACEPTION
     Dosage: UNK
     Dates: start: 20070701, end: 20091001
  2. TYLENOL-500 [Concomitant]
     Dosage: UNK UNK, PRN
  3. ADVIL LIQUI-GELS [Concomitant]
     Dosage: UNK UNK, PRN
  4. ANTACIDS [Concomitant]
     Dosage: UNK UNK, PRN

REACTIONS (4)
  - BILIARY DYSKINESIA [None]
  - CHOLECYSTITIS CHRONIC [None]
  - GALLBLADDER DISORDER [None]
  - PAIN [None]
